FAERS Safety Report 8170133-5 (Version None)
Quarter: 2012Q1

REPORT INFORMATION
  Report Type: 
  Country: None (occurrence: None)
  Receive Date: 20120228
  Receipt Date: 20120217
  Transmission Date: 20120608
  Serious: Yes (Hospitalization)
  Sender: FDA-Public Use
  Company Number: PHEH1995US03293

PATIENT
  Sex: Male
  Weight: 70 kg

DRUGS (1)
  1. NEORAL [Suspect]
     Dosage: 700-800 MG
     Route: 048
     Dates: start: 19950521

REACTIONS (7)
  - ATAXIA [None]
  - MALAISE [None]
  - DYSPHEMIA [None]
  - CONFUSIONAL STATE [None]
  - NEUROTOXICITY [None]
  - VISION BLURRED [None]
  - TREMOR [None]
